FAERS Safety Report 17322586 (Version 1)
Quarter: 2020Q1

REPORT INFORMATION
  Report Type: Spontaneous
  Country: CA (occurrence: CA)
  Receive Date: 20200127
  Receipt Date: 20200127
  Transmission Date: 20200409
  Serious: Yes (Death, Other)
  Sender: FDA-Public Use
  Company Number: CA-AUROBINDO-AUR-APL-2020-003815

PATIENT
  Age: 73 Year
  Sex: Male
  Weight: 62 kg

DRUGS (4)
  1. PANTOPRAZOLE [Suspect]
     Active Substance: PANTOPRAZOLE
     Indication: BRAIN NEOPLASM MALIGNANT
     Dosage: UNK
     Route: 065
  2. AVASTIN [Suspect]
     Active Substance: BEVACIZUMAB
     Dosage: 710 MILLIGRAM,1 EVERY 2 WEEKS
     Route: 042
  3. AVASTIN [Suspect]
     Active Substance: BEVACIZUMAB
     Indication: BRAIN NEOPLASM MALIGNANT
     Dosage: 621 MILLIGRAM,1 EVERY 2 WEEKS
     Route: 042
  4. DILANTIN [Concomitant]
     Active Substance: PHENYTOIN
     Indication: PRODUCT USED FOR UNKNOWN INDICATION
     Dosage: UNK, ONCE A DAY
     Route: 065

REACTIONS (9)
  - Asthenia [Fatal]
  - Death [Fatal]
  - Cough [Fatal]
  - Hiccups [Fatal]
  - Fatigue [Fatal]
  - Vomiting [Fatal]
  - Nausea [Fatal]
  - Weight decreased [Fatal]
  - Drug ineffective [Fatal]
